FAERS Safety Report 17484731 (Version 3)
Quarter: 2020Q4

REPORT INFORMATION
  Report Type: Spontaneous
  Country: FR (occurrence: FR)
  Receive Date: 20200302
  Receipt Date: 20201208
  Transmission Date: 20210113
  Serious: Yes (Hospitalization)
  Sender: FDA-Public Use
  Company Number: FR-MYLANLABS-2020M1021933

PATIENT
  Age: 68 Year
  Sex: Female
  Weight: 53.6 kg

DRUGS (1)
  1. RAMIPRIL. [Suspect]
     Active Substance: RAMIPRIL
     Indication: HYPERTENSION
     Dosage: UNK
     Route: 048
     Dates: start: 201909, end: 201911

REACTIONS (4)
  - Product availability issue [Not Recovered/Not Resolved]
  - Diffuse vasculitis [Recovering/Resolving]
  - Hypersensitivity vasculitis [Recovering/Resolving]
  - Peripheral ischaemia [Not Recovered/Not Resolved]

NARRATIVE: CASE EVENT DATE: 201909
